FAERS Safety Report 14103738 (Version 3)
Quarter: 2017Q4

REPORT INFORMATION
  Report Type: Spontaneous
  Country: US (occurrence: US)
  Receive Date: 20171018
  Receipt Date: 20171229
  Transmission Date: 20180321
  Serious: Yes (Hospitalization, Other)
  Sender: FDA-Public Use
  Company Number: US-BAYER-2017-198018

PATIENT
  Age: 14 Year
  Sex: Male

DRUGS (3)
  1. KOGENATE FS [Suspect]
     Active Substance: ANTIHEMOPHILIC FACTOR, HUMAN RECOMBINANT
     Indication: FACTOR VIII DEFICIENCY
     Dosage: 3000 U, PRN
     Route: 042
     Dates: start: 20170302
  2. KOGENATE FS [Suspect]
     Active Substance: ANTIHEMOPHILIC FACTOR, HUMAN RECOMBINANT
     Indication: FACTOR VIII DEFICIENCY
     Dosage: 2000 UNITS MON AND WED PROPHYLAXIS, 2500 UNITS FRIDAY
     Route: 042
     Dates: start: 20120816
  3. KOGENATE FS [Suspect]
     Active Substance: ANTIHEMOPHILIC FACTOR, HUMAN RECOMBINANT
     Indication: FACTOR VIII DEFICIENCY
     Dosage: 1500IU DUE TO LEG INJURY
     Route: 042

REACTIONS (5)
  - Contusion [None]
  - Limb injury [None]
  - Haemorrhage [None]
  - Limb injury [None]
  - Fall [None]

NARRATIVE: CASE EVENT DATE: 20171009
